FAERS Safety Report 7230653-4 (Version None)
Quarter: 2011Q1

REPORT INFORMATION
  Report Type: 
  Country: None (occurrence: None)
  Receive Date: 20110118
  Receipt Date: 20101210
  Transmission Date: 20110831
  Serious: No
  Sender: FDA-Public Use
  Company Number: HU-BAYER-2010-003820

PATIENT
  Sex: Female

DRUGS (1)
  1. MIRENA [Suspect]
     Indication: CONTRACEPTION
     Dosage: 20 MCG/24HR, CONT
     Route: 015
     Dates: start: 20101008, end: 20101109

REACTIONS (4)
  - ABDOMINAL PAIN [None]
  - DEVICE EXPULSION [None]
  - CHILLS [None]
  - GENITAL HAEMORRHAGE [None]
